FAERS Safety Report 10997363 (Version 3)
Quarter: 2015Q2

REPORT INFORMATION
  Report Type: Spontaneous
  Country: US (occurrence: US)
  Receive Date: 20150408
  Receipt Date: 20150424
  Transmission Date: 20150821
  Serious: No
  Sender: FDA-Public Use
  Company Number: US-PFIZER INC-2014067450

PATIENT
  Age: 63 Year
  Sex: Female

DRUGS (32)
  1. AMLODIPINE [Concomitant]
     Active Substance: AMLODIPINE BESYLATE
     Dosage: 10 MG, 1X/DAY
     Route: 048
  2. EXCEDRIN [Concomitant]
     Active Substance: ACETAMINOPHEN\ASPIRIN\CAFFEINE
     Dosage: UNK, DAILY
  3. VITAMIN C [Concomitant]
     Active Substance: ASCORBIC ACID
     Dosage: UNK, 1X/DAY
  4. FISH OIL [Concomitant]
     Active Substance: FISH OIL
     Dosage: UNK
  5. XELJANZ [Concomitant]
     Active Substance: TOFACITINIB CITRATE
     Dosage: 5 MG, PO BID
     Route: 048
  6. B6 [Concomitant]
     Active Substance: PYRIDOXINE HYDROCHLORIDE
     Dosage: 100 MG, UNK
     Route: 048
  7. RESTASIS [Concomitant]
     Active Substance: CYCLOSPORINE
     Dosage: UNK, 2X/DAY
     Route: 047
  8. PROBIOTICS [Concomitant]
     Active Substance: PROBIOTICS NOS
     Dosage: UNK, 1X/DAY
  9. LYRICA [Suspect]
     Active Substance: PREGABALIN
     Indication: DIABETIC NEUROPATHY
     Dosage: 100 MG, 3X/DAY
     Route: 048
  10. ALBUTEROL SULFATE. [Concomitant]
     Active Substance: ALBUTEROL SULFATE
     Dosage: UNK UNK, AS NEEDED
     Route: 045
  11. VITAMIN D3 [Concomitant]
     Active Substance: CHOLECALCIFEROL
     Dosage: 5000 IU, 1X/DAY
  12. SELENIUM [Concomitant]
     Active Substance: SELENIUM
     Dosage: 200 ?G, 1X/DAY
  13. LORTAB [Concomitant]
     Active Substance: ACETAMINOPHEN\HYDROCODONE BITARTRATE
     Dosage: UNK, AS NEEDED (HYDROCODONE BITARTRATE 7.5, PARACETAMOL 300MG, 4 TABS A DAY PRN)
  14. LUTEIN [Concomitant]
     Active Substance: LUTEIN
     Dosage: UNK
  15. CALCIUM LACTATE [Concomitant]
     Active Substance: CALCIUM LACTATE
     Dosage: UNK
  16. ZINC [Concomitant]
     Active Substance: ZINC\ZINC CHLORIDE
     Dosage: 50 MG, 1X/DAY
     Route: 048
  17. MILK THISTLE COMBO [Concomitant]
     Dosage: 1 TAB A DAY
  18. NEXIUM [Concomitant]
     Active Substance: ESOMEPRAZOLE MAGNESIUM
     Dosage: 40 MG, AS NEEDED
  19. MELATONIN [Concomitant]
     Active Substance: MELATONIN
     Dosage: UNK, 1X/DAY
  20. B12-VITAMIIN [Concomitant]
     Dosage: 1000 ?G, UNK
     Route: 048
  21. BIOTIN [Concomitant]
     Active Substance: BIOTIN
     Dosage: UNK, 1X/DAY
  22. ARMOUR THYROID [Concomitant]
     Active Substance: THYROID, PORCINE\THYROID, UNSPECIFIED
     Dosage: 30 MG, 1X/DAY (PO Q AM)
     Route: 048
  23. ROBAXIN [Concomitant]
     Active Substance: METHOCARBAMOL
     Dosage: 750 MG, 3X/DAY (1 TAB TID PRN)
  24. ALLOPURINOL. [Concomitant]
     Active Substance: ALLOPURINOL
     Dosage: 300 MG, AS NEEDED
  25. ATIVAN [Concomitant]
     Active Substance: LORAZEPAM
     Dosage: 2 MG, TAB AT BEDTIME AS NEEDED
  26. ECOTRIN [Concomitant]
     Active Substance: ASPIRIN
     Dosage: 325 MG, 1X/DAY (QHS)
  27. MOTRIN [Concomitant]
     Active Substance: IBUPROFEN
     Dosage: UNK, DAILY
  28. FOLIC ACID. [Concomitant]
     Active Substance: FOLIC ACID
     Dosage: 400 ?G, 1X/DAY
  29. BILBERRY [Concomitant]
     Active Substance: BILBERRY
     Dosage: UNK
  30. MAGNESIUM [Concomitant]
     Active Substance: MAGNESIUM
     Dosage: UNK
  31. GARCINIA [Concomitant]
     Active Substance: DIETARY SUPPLEMENT
     Dosage: 1000 MG, 2X/DAY
  32. PROGESTERONE. [Concomitant]
     Active Substance: PROGESTERONE
     Dosage: 100 MG, AS NEEDED Q HS (CYCLE DAYS 1-14)

REACTIONS (1)
  - Candida infection [Unknown]
